FAERS Safety Report 21255844 (Version 1)
Quarter: 2022Q3

REPORT INFORMATION
  Report Type: Report from Study
  Country: None (occurrence: CA)
  Receive Date: 20220825
  Receipt Date: 20220825
  Transmission Date: 20221027
  Serious: Yes (Life-Threatening)
  Sender: FDA-Public Use
  Company Number: CA-McGuff Pharmaceuticals, Inc.-2132236

PATIENT

DRUGS (2)
  1. UNSPECIFIED INGREDIENT [Suspect]
     Active Substance: UNSPECIFIED INGREDIENT
     Indication: Anaphylactic reaction
  2. ASCORBIC ACID [Suspect]
     Active Substance: ASCORBIC ACID
     Route: 041

REACTIONS (1)
  - Anaphylactic reaction [Recovered/Resolved]
